FAERS Safety Report 7753367-0 (Version None)
Quarter: 2011Q3

REPORT INFORMATION
  Report Type: 
  Country: None (occurrence: None)
  Receive Date: 20110915
  Receipt Date: 20110906
  Transmission Date: 20111222
  Serious: Yes (Other)
  Sender: FDA-Public Use
  Company Number: ES-ASTRAZENECA-2011SE52093

PATIENT
  Age: 50 Year
  Sex: Male
  Weight: 95 kg

DRUGS (10)
  1. VANDETANIB [Suspect]
     Route: 048
     Dates: start: 20110905
  2. PREGABALINA [Concomitant]
     Route: 048
     Dates: start: 20110201
  3. VANDETANIB [Suspect]
     Indication: THYROID CANCER
     Route: 048
     Dates: start: 20110818, end: 20110827
  4. CYMBALTA [Concomitant]
     Route: 048
  5. ALPRAZOLAM [Concomitant]
     Route: 048
  6. MST 100 [Concomitant]
     Route: 048
     Dates: start: 20110601
  7. LACTULOSA [Concomitant]
     Route: 048
     Dates: start: 20090101
  8. TIROXINA [Concomitant]
     Route: 048
     Dates: start: 20080101
  9. PREDNISONE [Concomitant]
     Route: 048
     Dates: start: 20110601
  10. VALDOXAN [Concomitant]

REACTIONS (1)
  - GAMMA-GLUTAMYLTRANSFERASE INCREASED [None]
